FAERS Safety Report 5749496-3 (Version None)
Quarter: 2008Q2

REPORT INFORMATION
  Report Type: 
  Country: None (occurrence: None)
  Receive Date: 20080527
  Receipt Date: 20080520
  Transmission Date: 20081010
  Serious: Yes (Hospitalization)
  Sender: FDA-Public Use
  Company Number: B0518439A

PATIENT
  Age: 74 Year
  Sex: Male

DRUGS (5)
  1. PAXIL [Suspect]
     Indication: HYPOCHONDRIASIS
     Dosage: 20MG PER DAY
     Route: 048
     Dates: start: 20080124, end: 20080408
  2. BAKTAR [Concomitant]
     Indication: PROPHYLAXIS
     Dosage: 1TAB PER DAY
     Route: 048
     Dates: start: 20070921, end: 20071227
  3. DOGMATYL [Concomitant]
     Indication: HYPOCHONDRIASIS
     Dosage: 150MG PER DAY
     Route: 048
     Dates: start: 20080124
  4. LENDORMIN [Concomitant]
     Indication: INSOMNIA
     Dosage: .25MG PER DAY
     Route: 048
     Dates: start: 20080124, end: 20080507
  5. CHINESE MEDICINE [Concomitant]
     Indication: HYPOCHONDRIASIS
     Dosage: 7.5G PER DAY
     Route: 048
     Dates: start: 20080327, end: 20080410

REACTIONS (4)
  - ANOREXIA [None]
  - HYPONATRAEMIA [None]
  - INAPPROPRIATE ANTIDIURETIC HORMONE SECRETION [None]
  - PNEUMONIA [None]
